FAERS Safety Report 17716012 (Version 5)
Quarter: 2022Q3

REPORT INFORMATION
  Report Type: Spontaneous
  Country: US (occurrence: None)
  Receive Date: 20200428
  Receipt Date: 20220930
  Transmission Date: 20221027
  Serious: Yes (Death, Hospitalization, Other)
  Sender: FDA-Public Use
  Company Number: 2020SE54536

PATIENT
  Age: 17780 Day
  Sex: Female

DRUGS (71)
  1. NEXIUM [Suspect]
     Active Substance: ESOMEPRAZOLE MAGNESIUM
     Route: 048
     Dates: start: 198910, end: 201305
  2. NEXIUM I.V. [Suspect]
     Active Substance: ESOMEPRAZOLE SODIUM
     Route: 042
     Dates: start: 198910, end: 201305
  3. PRILOSEC [Suspect]
     Active Substance: OMEPRAZOLE MAGNESIUM
     Indication: Gastrooesophageal reflux disease
     Route: 048
     Dates: start: 198910, end: 201305
  4. PRILOSEC [Suspect]
     Active Substance: OMEPRAZOLE MAGNESIUM
     Indication: Gastrooesophageal reflux disease
     Dosage: GENERIC
     Route: 065
     Dates: start: 2009
  5. PRILOSEC [Suspect]
     Active Substance: OMEPRAZOLE MAGNESIUM
     Indication: Gastrooesophageal reflux disease
     Dosage: GENERIC
     Route: 065
     Dates: start: 2009, end: 2021
  6. PRILOSEC [Suspect]
     Active Substance: OMEPRAZOLE MAGNESIUM
     Indication: Gastrooesophageal reflux disease
     Route: 048
     Dates: start: 2009, end: 2016
  7. PRILOSEC [Suspect]
     Active Substance: OMEPRAZOLE MAGNESIUM
     Indication: Gastrooesophageal reflux disease
     Route: 048
     Dates: start: 1989, end: 2016
  8. PRILOSEC OTC [Suspect]
     Active Substance: OMEPRAZOLE MAGNESIUM
     Indication: Gastrooesophageal reflux disease
     Route: 048
     Dates: start: 198910, end: 201305
  9. PRILOSEC OTC [Suspect]
     Active Substance: OMEPRAZOLE MAGNESIUM
     Indication: Gastrooesophageal reflux disease
     Dosage: ACCORDING TO PKG
     Route: 048
     Dates: start: 2011, end: 2017
  10. PREVACID [Suspect]
     Active Substance: LANSOPRAZOLE
     Indication: Gastrooesophageal reflux disease
     Dosage: GENERIC
     Route: 065
     Dates: start: 198910, end: 201305
  11. PREVACID [Suspect]
     Active Substance: LANSOPRAZOLE
     Indication: Gastrooesophageal reflux disease
     Dosage: GENERIC
     Route: 065
     Dates: start: 20110101, end: 20170702
  12. PREVACID [Suspect]
     Active Substance: LANSOPRAZOLE
     Indication: Gastrooesophageal reflux disease
     Route: 065
     Dates: start: 2011, end: 2011
  13. PREVACID IV [Suspect]
     Active Substance: LANSOPRAZOLE
     Route: 065
     Dates: start: 198910, end: 201305
  14. PROTONIX [Suspect]
     Active Substance: PANTOPRAZOLE SODIUM
     Indication: Gastrooesophageal reflux disease
     Route: 065
     Dates: start: 198910, end: 201305
  15. PROTONIX [Suspect]
     Active Substance: PANTOPRAZOLE SODIUM
     Indication: Gastrooesophageal reflux disease
     Route: 065
     Dates: start: 2008, end: 20130506
  16. PROTONIX [Suspect]
     Active Substance: PANTOPRAZOLE SODIUM
     Indication: Gastrooesophageal reflux disease
     Route: 065
     Dates: start: 2008, end: 2018
  17. PROTONIX [Suspect]
     Active Substance: PANTOPRAZOLE SODIUM
     Route: 065
     Dates: start: 198910, end: 201305
  18. LISINOPRIL [Concomitant]
     Active Substance: LISINOPRIL
     Indication: Hypertension
     Dosage: JUL-OCT 2017
  19. ZOSYN [Concomitant]
     Active Substance: PIPERACILLIN SODIUM\TAZOBACTAM SODIUM
  20. ALBUTEROL [Concomitant]
     Active Substance: ALBUTEROL
  21. ALTACE [Concomitant]
     Active Substance: RAMIPRIL
  22. ATROVENT [Concomitant]
     Active Substance: IPRATROPIUM BROMIDE
  23. COREG [Concomitant]
     Active Substance: CARVEDILOL
  24. LOVENOX [Concomitant]
     Active Substance: ENOXAPARIN SODIUM
  25. LYRICA [Concomitant]
     Active Substance: PREGABALIN
  26. NORVASC [Concomitant]
     Active Substance: AMLODIPINE BESYLATE
  27. NOVOLIN NOS [Concomitant]
     Active Substance: INSULIN HUMAN
  28. ZOFRAN [Concomitant]
     Active Substance: ONDANSETRON HYDROCHLORIDE
  29. XANAX [Concomitant]
     Active Substance: ALPRAZOLAM
  30. ZETIA [Concomitant]
     Active Substance: EZETIMIBE
  31. ZOCOR [Concomitant]
     Active Substance: SIMVASTATIN
  32. SOLU-MEDROL [Concomitant]
     Active Substance: METHYLPREDNISOLONE SODIUM SUCCINATE
  33. ADVAIR HFA [Concomitant]
     Active Substance: FLUTICASONE PROPIONATE\SALMETEROL XINAFOATE
  34. HYDROXYCHLOROQUINE [Concomitant]
     Active Substance: HYDROXYCHLOROQUINE
  35. LEVAQUIN [Concomitant]
     Active Substance: LEVOFLOXACIN
  36. CELLCEPT [Concomitant]
     Active Substance: MYCOPHENOLATE MOFETIL
  37. BUMETANIDE [Concomitant]
     Active Substance: BUMETANIDE
     Indication: Diuretic therapy
     Dosage: JUN-NOV 2017
  38. ALLOPURINOL [Concomitant]
     Active Substance: ALLOPURINOL
     Indication: Blood uric acid abnormal
     Dosage: JUN-NOV 2017
  39. ATORVASTATIN [Concomitant]
     Active Substance: ATORVASTATIN
     Indication: Blood cholesterol abnormal
     Dosage: JUN-SEPT 2017
  40. TRAMADOL [Concomitant]
     Active Substance: TRAMADOL
     Indication: Pain
     Dosage: JUN-NOV 2017
  41. METHOTREXATE [Concomitant]
     Active Substance: METHOTREXATE
     Indication: Arthritis
     Dosage: JUN 2017
  42. SULFASALAZINE [Concomitant]
     Active Substance: SULFASALAZINE
     Indication: Rheumatoid arthritis
     Dosage: AUG-NOV 2017
  43. AMOXICILLIN [Concomitant]
     Active Substance: AMOXICILLIN
     Indication: Infection
     Dosage: SEPT 2017
  44. ACETAMINOPHEN [Concomitant]
     Active Substance: ACETAMINOPHEN
     Indication: Pain
     Dates: start: 2003, end: 2021
  45. ASPIRIN [Concomitant]
     Active Substance: ASPIRIN
     Indication: Cardiac disorder
     Dates: start: 2009, end: 2021
  46. BENADRYL [Concomitant]
     Active Substance: DIPHENHYDRAMINE HYDROCHLORIDE
     Indication: Sinus pain
     Dates: start: 2000, end: 2021
  47. BENADRYL [Concomitant]
     Active Substance: DIPHENHYDRAMINE HYDROCHLORIDE
     Indication: Hypersensitivity
     Dates: start: 2000, end: 2021
  48. VITAMIN D [Concomitant]
     Active Substance: VITAMIN D NOS
     Indication: Vitamin D deficiency
     Dates: start: 2015, end: 2021
  49. VITAMIN B12 [Concomitant]
     Active Substance: CYANOCOBALAMIN
     Indication: Vitamin B12 deficiency
     Dates: start: 2015, end: 2021
  50. FOLIC ACID [Concomitant]
     Active Substance: FOLIC ACID
     Indication: Folate deficiency
     Dates: start: 2015, end: 2021
  51. VITAMIN C [Concomitant]
     Active Substance: ASCORBIC ACID
     Indication: Vitamin C deficiency
     Dates: start: 2015, end: 2021
  52. IRON [Concomitant]
     Active Substance: IRON
     Indication: Iron deficiency
     Dates: start: 2015, end: 2021
  53. PEPCID [Concomitant]
     Active Substance: FAMOTIDINE
     Dates: start: 2008, end: 2013
  54. ZANTAC [Concomitant]
     Active Substance: RANITIDINE HYDROCHLORIDE
     Dates: start: 2009, end: 2013
  55. CIMETIDINE [Concomitant]
     Active Substance: CIMETIDINE
     Dates: start: 2009, end: 2013
  56. TUMS [Concomitant]
     Active Substance: CALCIUM CARBONATE
     Dates: start: 2009, end: 2013
  57. GABAPENTIN [Concomitant]
     Active Substance: GABAPENTIN
  58. LORATADINE [Concomitant]
     Active Substance: LORATADINE
  59. MONTELUKAST SODIUM [Concomitant]
     Active Substance: MONTELUKAST SODIUM
  60. CLOPIDOGREL BISULFATE [Concomitant]
     Active Substance: CLOPIDOGREL BISULFATE
  61. CALCITRIOL [Concomitant]
     Active Substance: CALCITRIOL
  62. DILTIAZEM [Concomitant]
     Active Substance: DILTIAZEM
  63. PREDNISONE [Concomitant]
     Active Substance: PREDNISONE
  64. TOPIRAMATE [Concomitant]
     Active Substance: TOPIRAMATE
  65. CYCLOBENZAPRINE [Concomitant]
     Active Substance: CYCLOBENZAPRINE
  66. METFORMIN [Concomitant]
     Active Substance: METFORMIN HYDROCHLORIDE
  67. PROVENTIL HFA [Concomitant]
     Active Substance: ALBUTEROL SULFATE
  68. HUMULIN NOS [Concomitant]
     Active Substance: INSULIN HUMAN
  69. ACTOS [Concomitant]
     Active Substance: PIOGLITAZONE HYDROCHLORIDE
  70. GLYBURIDE [Concomitant]
     Active Substance: GLYBURIDE
  71. INSULIN NOS [Concomitant]
     Active Substance: INSULIN NOS

REACTIONS (7)
  - Cardiac arrest [Fatal]
  - Acute respiratory failure [Fatal]
  - Chronic left ventricular failure [Fatal]
  - Acute kidney injury [Unknown]
  - Chronic kidney disease [Unknown]
  - Renal failure [Not Recovered/Not Resolved]
  - Renal injury [Unknown]

NARRATIVE: CASE EVENT DATE: 20071112
